FAERS Safety Report 6193265-X (Version None)
Quarter: 2009Q2

REPORT INFORMATION
  Report Type: 
  Country: None (occurrence: None)
  Receive Date: 20090518
  Receipt Date: 20090511
  Transmission Date: 20091009
  Serious: Yes (Life-Threatening, Hospitalization, Other)
  Sender: FDA-Public Use
  Company Number: B0570412A

PATIENT
  Sex: Female

DRUGS (2)
  1. RELENZA [Suspect]
     Indication: INFLUENZA
     Dosage: 10MG TWICE PER DAY
     Route: 055
     Dates: start: 20090214
  2. ERYTHROMYCIN [Concomitant]
     Indication: DRUG USE FOR UNKNOWN INDICATION
     Route: 065

REACTIONS (9)
  - DYSPHAGIA [None]
  - GENERALISED ERYTHEMA [None]
  - LIP EXFOLIATION [None]
  - LIP OEDEMA [None]
  - LYMPHOCYTE STIMULATION TEST POSITIVE [None]
  - MOUTH HAEMORRHAGE [None]
  - MUCOSAL EROSION [None]
  - PYREXIA [None]
  - STEVENS-JOHNSON SYNDROME [None]
